FAERS Safety Report 7644331-0 (Version None)
Quarter: 2011Q3

REPORT INFORMATION
  Report Type: 
  Country: None (occurrence: None)
  Receive Date: 20110729
  Receipt Date: 20110725
  Transmission Date: 20111222
  Serious: Yes (Hospitalization, Other)
  Sender: FDA-Public Use
  Company Number: US-ELI_LILLY_AND_COMPANY-US201008003480

PATIENT
  Sex: Female

DRUGS (9)
  1. OXYCODONE HCL [Concomitant]
  2. VYTORIN [Concomitant]
     Dosage: UNK
  3. PREVACID [Concomitant]
     Dosage: 30 MG, QD
  4. LASIX [Concomitant]
  5. VERAPAMIL [Concomitant]
     Dosage: 240 MG, QD
  6. SYMBICORT [Concomitant]
  7. BYETTA [Suspect]
     Indication: TYPE 2 DIABETES MELLITUS
     Dosage: 5 UG, BID
     Dates: end: 20070727
  8. BYETTA [Suspect]
     Dosage: 10 UG, BID
     Route: 058
     Dates: end: 20090401
  9. METFORMIN HCL [Concomitant]
     Dosage: 750 MG, QD

REACTIONS (1)
  - PANCREATITIS ACUTE [None]
